FAERS Safety Report 25314125 (Version 1)
Quarter: 2025Q2

REPORT INFORMATION
  Report Type: Report from Study
  Country: DE (occurrence: DE)
  Receive Date: 20250514
  Receipt Date: 20250514
  Transmission Date: 20250716
  Serious: Yes (Hospitalization)
  Sender: ALEXION PHARMACEUTICALS
  Company Number: DE-ASTRAZENECA-202505GLO006360DE

PATIENT
  Age: 81 Year
  Weight: 88 kg

DRUGS (5)
  1. DURVALUMAB [Suspect]
     Active Substance: DURVALUMAB
     Indication: Hepatocellular carcinoma
  2. SODIUM CHLORIDE [Concomitant]
     Active Substance: SODIUM CHLORIDE
  3. SODIUM CHLORIDE [Concomitant]
     Active Substance: SODIUM CHLORIDE
  4. SODIUM CHLORIDE [Concomitant]
     Active Substance: SODIUM CHLORIDE
  5. TREMELIMUMAB [Concomitant]
     Active Substance: TREMELIMUMAB
     Route: 065

REACTIONS (1)
  - Pneumonia respiratory syncytial viral [Not Recovered/Not Resolved]
